FAERS Safety Report 16545687 (Version 1)
Quarter: 2019Q3

REPORT INFORMATION
  Report Type: Spontaneous
  Country: SE (occurrence: SE)
  Receive Date: 20190709
  Receipt Date: 20190709
  Transmission Date: 20191004
  Serious: Yes (Other)
  Sender: FDA-Public Use
  Company Number: SE-MYLANLABS-2019M1063031

PATIENT
  Age: 72 Year
  Sex: Female

DRUGS (1)
  1. LOSARTAN MYLAN 50 MG FILM-COATED TABLETS [Suspect]
     Active Substance: LOSARTAN POTASSIUM
     Indication: HYPERTENSION
     Dosage: 50 MILLIGRAM, QD,50 MG 1 TABLETT DAGLIGEN
     Route: 048
     Dates: start: 20180627, end: 20180810

REACTIONS (3)
  - Tinnitus [Not Recovered/Not Resolved]
  - Pain in extremity [Not Recovered/Not Resolved]
  - Muscle spasms [Not Recovered/Not Resolved]

NARRATIVE: CASE EVENT DATE: 20180727
